FAERS Safety Report 19118322 (Version 1)
Quarter: 2021Q2

REPORT INFORMATION
  Report Type: Spontaneous
  Country: US (occurrence: US)
  Receive Date: 20210410
  Receipt Date: 20210410
  Transmission Date: 20210717
  Serious: Yes (Other)
  Sender: FDA-Public Use
  Company Number: NVSC2020US349305

PATIENT
  Sex: Male

DRUGS (2)
  1. HYDROXYUREA. [Suspect]
     Active Substance: HYDROXYUREA
     Indication: LANGERHANS^ CELL HISTIOCYTOSIS
     Dosage: UNK
     Route: 065
  2. METHOTREXATE. [Suspect]
     Active Substance: METHOTREXATE
     Indication: LANGERHANS^ CELL HISTIOCYTOSIS
     Dosage: UNK
     Route: 065

REACTIONS (2)
  - Langerhans^ cell histiocytosis [Unknown]
  - Bone lesion [Unknown]
